FAERS Safety Report 5166195-X (Version None)
Quarter: 2006Q4

REPORT INFORMATION
  Report Type: 
  Country: None (occurrence: None)
  Receive Date: 20060830
  Receipt Date: 20060508
  Transmission Date: 20070319
  Serious: No
  Sender: FDA-Public Use
  Company Number: 223878

PATIENT
  Age: 26 Year
  Sex: Male

DRUGS (6)
  1. XOLAIR [Suspect]
     Indication: ASTHMA
     Dosage: 1.2, Q4W, SUBCUTANEOUS
     Route: 058
     Dates: start: 20031213, end: 20040210
  2. ZYRTEC-D 12 HOUR [Concomitant]
  3. SINGULAIR [Concomitant]
  4. ADVAIR DISKUS 100/50 [Concomitant]
  5. NASONEX [Concomitant]
  6. PROVENTIL (ALBUTEROLOL/ALBUTEROL SULFATE) [Concomitant]

REACTIONS (1)
  - ALOPECIA [None]
